FAERS Safety Report 9905874 (Version 3)
Quarter: 2014Q2

REPORT INFORMATION
  Report Type: Spontaneous
  Country: GB (occurrence: GB)
  Receive Date: 20140218
  Receipt Date: 20140602
  Transmission Date: 20141212
  Serious: Yes (Other)
  Sender: FDA-Public Use
  Company Number: GB-UCBSA-112482

PATIENT
  Sex: Male

DRUGS (2)
  1. KEPPRA [Suspect]
     Indication: EPILEPSY
     Dosage: STRENGTH: 300 ML (100 MG/ML)
     Dates: start: 201307
  2. KEPPRA [Suspect]
     Indication: EPILEPSY
     Dosage: UNK UNK, 2X/DAY (BID)
     Dates: start: 201204, end: 2013

REACTIONS (2)
  - Dysphagia [Not Recovered/Not Resolved]
  - Product quality issue [Not Recovered/Not Resolved]
